FAERS Safety Report 19097362 (Version 4)
Quarter: 2022Q3

REPORT INFORMATION
  Report Type: Report from Study
  Country: US (occurrence: US)
  Receive Date: 20210406
  Receipt Date: 20220914
  Transmission Date: 20221027
  Serious: No
  Sender: FDA-Public Use
  Company Number: NVSC2021US077846

PATIENT
  Sex: Male

DRUGS (1)
  1. ENTRESTO [Suspect]
     Active Substance: SACUBITRIL\VALSARTAN
     Indication: Cardiac failure chronic
     Dosage: UNK
     Route: 065

REACTIONS (6)
  - Hypoacusis [Unknown]
  - Amnesia [Unknown]
  - Confusional state [Unknown]
  - Fall [Unknown]
  - Conversion disorder [Unknown]
  - Product dose omission issue [Unknown]
